FAERS Safety Report 20829178 (Version 3)
Quarter: 2022Q3

REPORT INFORMATION
  Report Type: Spontaneous
  Country: AU (occurrence: AU)
  Receive Date: 20220513
  Receipt Date: 20220819
  Transmission Date: 20221027
  Serious: No
  Sender: FDA-Public Use
  Company Number: AU-MYLANLABS-2022M1034103

PATIENT

DRUGS (1)
  1. EPIPEN JR [Suspect]
     Active Substance: EPINEPHRINE
     Indication: Product used for unknown indication
     Dosage: 150MCG/2ML
     Route: 065

REACTIONS (2)
  - Device leakage [Unknown]
  - Device failure [Unknown]
